FAERS Safety Report 11925900 (Version 1)
Quarter: 2016Q1

REPORT INFORMATION
  Report Type: Spontaneous
  Country: IT (occurrence: IT)
  Receive Date: 20160119
  Receipt Date: 20160119
  Transmission Date: 20160526
  Serious: Yes (Other)
  Sender: FDA-Public Use
  Company Number: IT-BRISTOL-MYERS SQUIBB COMPANY-BMS-2016-000010

PATIENT
  Age: 50 Year
  Sex: Male
  Weight: 52 kg

DRUGS (2)
  1. LANSOPRAZOLE. [Concomitant]
     Active Substance: LANSOPRAZOLE
     Indication: PRODUCT USED FOR UNKNOWN INDICATION
     Route: 048
  2. COUMADIN [Suspect]
     Active Substance: WARFARIN SODIUM
     Indication: THROMBOCYTOSIS
     Dosage: UNK UNK, QD
     Route: 048

REACTIONS (7)
  - Retching [Unknown]
  - Subdural haematoma [Unknown]
  - Headache [Unknown]
  - Surgery [Unknown]
  - Sinusitis [Unknown]
  - Off label use [Unknown]
  - Nausea [Unknown]

NARRATIVE: CASE EVENT DATE: 20151226
